FAERS Safety Report 14999192 (Version 6)
Quarter: 2019Q2

REPORT INFORMATION
  Report Type: Report from Study
  Country: CN (occurrence: CN)
  Receive Date: 20180612
  Receipt Date: 20190402
  Transmission Date: 20190711
  Serious: Yes (Hospitalization)
  Sender: FDA-Public Use
  Company Number: CN-ROCHE-2136383

PATIENT
  Age: 56 Year
  Sex: Male
  Weight: 56 kg

DRUGS (20)
  1. ZOLEDRONIC ACID [Concomitant]
     Active Substance: ZOLEDRONIC ACID
     Route: 065
     Dates: start: 20180315, end: 20180315
  2. ZOLEDRONIC ACID [Concomitant]
     Active Substance: ZOLEDRONIC ACID
     Route: 065
     Dates: start: 20180921, end: 20180921
  3. CODEINE PHOSPHATE/IBUPROFEN [Concomitant]
     Active Substance: CODEINE PHOSPHATE\IBUPROFEN
     Indication: PAIN
     Route: 065
     Dates: start: 20170907, end: 20170913
  4. LACTULOSE. [Concomitant]
     Active Substance: LACTULOSE
     Route: 048
     Dates: start: 20180920, end: 20181027
  5. ZOLEDRONIC ACID [Concomitant]
     Active Substance: ZOLEDRONIC ACID
     Route: 065
     Dates: start: 20170909, end: 20170909
  6. ZOLEDRONIC ACID [Concomitant]
     Active Substance: ZOLEDRONIC ACID
     Route: 065
     Dates: start: 20180201, end: 20180201
  7. ZOLEDRONIC ACID [Concomitant]
     Active Substance: ZOLEDRONIC ACID
     Route: 065
     Dates: start: 20180628, end: 20180628
  8. RIBONUCLEIC ACID [Concomitant]
     Active Substance: RIBONUCLEIC ACID
     Route: 065
     Dates: start: 20180528, end: 20180529
  9. ZOLEDRONIC ACID [Concomitant]
     Active Substance: ZOLEDRONIC ACID
     Route: 065
     Dates: start: 20171020, end: 20171020
  10. CODEINE PHOSPHATE/IBUPROFEN [Concomitant]
     Active Substance: CODEINE PHOSPHATE\IBUPROFEN
     Route: 065
     Dates: start: 20180223
  11. PULMICORT RESPULES [Concomitant]
     Active Substance: BUDESONIDE
     Indication: MUSCLE SPASMS
     Route: 065
     Dates: start: 20180528, end: 20180529
  12. ATEZOLIZUMAB. [Suspect]
     Active Substance: ATEZOLIZUMAB
     Indication: NON-SMALL CELL LUNG CANCER
     Dosage: DATE OF MOST RECENT DOSE OF ATEZOLIZUMAB PRIOR TO SERIOUS ADVERSE EVENT: 17/MAY/2018
     Route: 042
     Dates: start: 20170301
  13. THYMOPENTIN [Concomitant]
     Active Substance: THYMOPENTIN
     Route: 065
     Dates: start: 20180528, end: 20180529
  14. ZOLEDRONIC ACID [Concomitant]
     Active Substance: ZOLEDRONIC ACID
     Route: 065
     Dates: start: 20180518, end: 20180518
  15. ESTAZOLAM. [Concomitant]
     Active Substance: ESTAZOLAM
     Route: 065
     Dates: start: 20180921, end: 20180924
  16. ZOLEDRONIC ACID [Concomitant]
     Active Substance: ZOLEDRONIC ACID
     Route: 065
     Dates: start: 20171221, end: 20171221
  17. PULMICORT RESPULES [Concomitant]
     Active Substance: BUDESONIDE
     Indication: ASTHMA
  18. ZOLEDRONIC ACID [Concomitant]
     Active Substance: ZOLEDRONIC ACID
     Route: 065
     Dates: start: 20180810, end: 20180810
  19. MORPHINE HYDROCHLORIDE [Concomitant]
     Active Substance: MORPHINE HYDROCHLORIDE
     Route: 065
     Dates: start: 20180920, end: 20180920
  20. GLYCERIN ENEMA OHTA [Concomitant]
     Route: 065
     Dates: start: 20180920, end: 20180920

REACTIONS (1)
  - Vocal cord paralysis [Not Recovered/Not Resolved]

NARRATIVE: CASE EVENT DATE: 201805
